FAERS Safety Report 17266619 (Version 1)
Quarter: 2020Q1

REPORT INFORMATION
  Report Type: Spontaneous
  Country: US (occurrence: US)
  Receive Date: 20200114
  Receipt Date: 20200114
  Transmission Date: 20200409
  Serious: No
  Sender: FDA-Public Use
  Company Number: US-BAUSCH-BL-2019-066560

PATIENT
  Sex: Male

DRUGS (2)
  1. JUBLIA [Suspect]
     Active Substance: EFINACONAZOLE
     Indication: PRODUCT USED FOR UNKNOWN INDICATION
     Dosage: 8 ML ON BOTH BIG TOES
     Route: 061
     Dates: start: 201907, end: 2019
  2. JUBLIA [Suspect]
     Active Substance: EFINACONAZOLE
     Dosage: 8 ML ON BOTH BIG TOES
     Route: 061
     Dates: start: 2019, end: 2019

REACTIONS (2)
  - Product quality issue [Unknown]
  - Blister [Unknown]

NARRATIVE: CASE EVENT DATE: 2019
